FAERS Safety Report 13153059 (Version 1)
Quarter: 2017Q1

REPORT INFORMATION
  Report Type: Spontaneous
  Country: CA (occurrence: CA)
  Receive Date: 20170126
  Receipt Date: 20170126
  Transmission Date: 20170428
  Serious: Yes (Disabling)
  Sender: FDA-Public Use
  Company Number: CA-009507513-1701CAN011371

PATIENT
  Age: 41 Year
  Sex: Female
  Weight: 53.52 kg

DRUGS (1)
  1. NASONEX [Suspect]
     Active Substance: MOMETASONE FUROATE
     Indication: RHINITIS ALLERGIC
     Dosage: 50 MICROGRAM, QID
     Route: 055

REACTIONS (31)
  - Bronchitis [Recovering/Resolving]
  - Dry eye [Recovering/Resolving]
  - Fatigue [Recovering/Resolving]
  - Nausea [Recovering/Resolving]
  - Toothache [Recovering/Resolving]
  - Diarrhoea [Recovering/Resolving]
  - Dyspnoea [Recovering/Resolving]
  - Increased appetite [Recovering/Resolving]
  - Weight increased [Recovering/Resolving]
  - Myalgia [Recovering/Resolving]
  - Lymphadenopathy [Recovering/Resolving]
  - Parosmia [Recovering/Resolving]
  - Pyrexia [Recovering/Resolving]
  - Tinnitus [Recovering/Resolving]
  - Tongue disorder [Recovering/Resolving]
  - Aphonia [Recovering/Resolving]
  - Cough [Recovering/Resolving]
  - Dry mouth [Recovering/Resolving]
  - Headache [Recovering/Resolving]
  - Ear pain [Recovering/Resolving]
  - Epistaxis [Recovering/Resolving]
  - Insomnia [Recovering/Resolving]
  - Urticaria [Recovering/Resolving]
  - Dizziness [Recovering/Resolving]
  - Hypersensitivity [Recovering/Resolving]
  - Rash [Recovering/Resolving]
  - Dysgeusia [Recovering/Resolving]
  - Peripheral swelling [Recovering/Resolving]
  - Swelling face [Recovering/Resolving]
  - Thirst [Recovering/Resolving]
  - Wheezing [Recovering/Resolving]
